FAERS Safety Report 12963588 (Version 3)
Quarter: 2016Q4

REPORT INFORMATION
  Report Type: Spontaneous
  Country: CN (occurrence: CN)
  Receive Date: 20161122
  Receipt Date: 20161208
  Transmission Date: 20170207
  Serious: Yes (Death)
  Sender: FDA-Public Use
  Company Number: CN-ROCHE-1857292

PATIENT
  Age: 8 Month
  Sex: Male

DRUGS (3)
  1. ROCEPHIN [Suspect]
     Active Substance: CEFTRIAXONE SODIUM
     Indication: NASOPHARYNGITIS
     Route: 041
     Dates: start: 20161116, end: 20161116
  2. ROCEPHIN [Suspect]
     Active Substance: CEFTRIAXONE SODIUM
     Indication: COUGH
  3. NORMAL SALINE [Concomitant]
     Active Substance: SODIUM CHLORIDE
     Route: 041
     Dates: start: 20161116, end: 20161116

REACTIONS (5)
  - Left ventricular failure [Fatal]
  - Product quality issue [Unknown]
  - Lung infection [Fatal]
  - Bronchospasm [Fatal]
  - Left ventricular hypertrophy [Fatal]

NARRATIVE: CASE EVENT DATE: 20161116
